FAERS Safety Report 8084306 (Version 2)
Quarter: 2013Q1

REPORT INFORMATION
  Report Type: Spontaneous
  Country: US (occurrence: US)
  Receive Date: 20110810
  Receipt Date: 20130321
  Transmission Date: 20140127
  Serious: Yes (Hospitalization)
  Sender: FDA-Public Use
  Company Number: US-GLAXOSMITHKLINE-A0903568A

PATIENT
  Age: 66 Year
  Sex: Male

DRUGS (1)
  1. AVANDARYL [Suspect]
     Indication: DIABETES MELLITUS
     Route: 048
     Dates: start: 200607, end: 20070219

REACTIONS (2)
  - Pulmonary embolism [Not Recovered/Not Resolved]
  - Cardiac failure congestive [Unknown]
